FAERS Safety Report 8364674-5 (Version None)
Quarter: 2012Q2

REPORT INFORMATION
  Report Type: 
  Country: None (occurrence: None)
  Receive Date: 20120516
  Receipt Date: 20120510
  Transmission Date: 20120825
  Serious: Yes (Other)
  Sender: FDA-Public Use
  Company Number: US-BAYER-2012-047013

PATIENT
  Age: 49 Year
  Sex: Female
  Weight: 109 kg

DRUGS (1)
  1. ASPIRIN [Suspect]
     Indication: PAIN IN EXTREMITY
     Dosage: 2 DF, ONCE
     Route: 048
     Dates: start: 20120509

REACTIONS (3)
  - HAEMATEMESIS [None]
  - THROAT IRRITATION [None]
  - EPISTAXIS [None]
